FAERS Safety Report 5727914-4 (Version None)
Quarter: 2008Q2

REPORT INFORMATION
  Report Type: 
  Country: None (occurrence: None)
  Receive Date: 20080505
  Receipt Date: 20080424
  Transmission Date: 20081010
  Serious: Yes (Other)
  Sender: FDA-Public Use
  Company Number: BR-PFIZER INC-2007091896

PATIENT
  Sex: Male

DRUGS (10)
  1. EXUBERA [Suspect]
     Indication: DIABETES MELLITUS
     Route: 055
     Dates: start: 20070629, end: 20070706
  2. FORMOTEROL W/BUDESONIDE [Concomitant]
  3. ALL OTHER THERAPEUTIC PRODUCTS [Concomitant]
  4. WARFARIN SODIUM [Concomitant]
  5. MONTELUKAST SODIUM [Concomitant]
  6. DIGOXIN [Concomitant]
  7. METICORTEN [Concomitant]
  8. ENALAPRIL [Concomitant]
  9. BALCOR [Concomitant]
  10. LASIX [Concomitant]

REACTIONS (2)
  - BRONCHITIS [None]
  - COUGH [None]
